FAERS Safety Report 8937029 (Version 1)
Quarter: 2012Q4

REPORT INFORMATION
  Report Type: 
  Country: GB (occurrence: GB)
  Receive Date: 20121130
  Receipt Date: 20121130
  Transmission Date: 20130627
  Serious: Yes (Other)
  Sender: FDA-Public Use
  Company Number: PHHY2012GB108619

PATIENT
  Sex: Male

DRUGS (2)
  1. SIMVASTATIN [Suspect]
     Dosage: 40 mg, QD
  2. DILTIAZEM [Suspect]
     Dosage: 60 mg, TID

REACTIONS (3)
  - Bladder dysfunction [Unknown]
  - Incorrect drug administration duration [Unknown]
  - Oedema peripheral [Unknown]
